FAERS Safety Report 7227508-8 (Version None)
Quarter: 2011Q1

REPORT INFORMATION
  Report Type: 
  Country: None (occurrence: None)
  Receive Date: 20110114
  Receipt Date: 20110110
  Transmission Date: 20110831
  Serious: Yes (Death)
  Sender: FDA-Public Use
  Company Number: PL-ACTELION-A-CH2010-43351

PATIENT
  Sex: Female
  Weight: 42 kg

DRUGS (7)
  1. ACENOCUMAROL [Concomitant]
  2. TRACLEER [Suspect]
     Indication: PULMONARY ARTERIAL HYPERTENSION
     Dosage: 125 MG, BID
     Route: 048
     Dates: start: 20101014, end: 20101016
  3. LASIX [Concomitant]
  4. DIGOXIN [Concomitant]
  5. CARVEDILOL [Concomitant]
  6. SPIRONOL [Concomitant]
  7. TRACLEER [Suspect]
     Dosage: 62.5 MG, BID
     Route: 048
     Dates: start: 20100917, end: 20101013

REACTIONS (1)
  - SUDDEN DEATH [None]
